FAERS Safety Report 5327929-4 (Version None)
Quarter: 2007Q2

REPORT INFORMATION
  Report Type: 
  Country: None (occurrence: None)
  Receive Date: 20070517
  Receipt Date: 20070515
  Transmission Date: 20071010
  Serious: Yes (Other)
  Sender: FDA-Public Use
  Company Number: US-BOEHRINGER INGELHEIM PHARMACEUTICALS, INC.-2007-BP-06621BP

PATIENT
  Age: 65 Year
  Sex: Male

DRUGS (11)
  1. SPIRIVA [Suspect]
     Indication: CHRONIC OBSTRUCTIVE PULMONARY DISEASE
     Route: 055
     Dates: start: 20070101, end: 20070512
  2. AVANDAMET [Concomitant]
     Indication: DIABETES MELLITUS
     Route: 048
  3. DIOVAN HCT [Concomitant]
     Indication: HYPERTENSION
     Route: 048
  4. FENOFIBRATE [Concomitant]
     Indication: BLOOD CHOLESTEROL
     Route: 048
  5. ADVAIR DISKUS 100/50 [Concomitant]
     Indication: CHRONIC OBSTRUCTIVE PULMONARY DISEASE
     Route: 055
  6. NITROSTAT [Concomitant]
     Indication: ANGINA PECTORIS
     Route: 048
  7. WARFARIN SODIUM [Concomitant]
     Indication: ANTICOAGULANT THERAPY
     Route: 048
  8. FIBERCON [Concomitant]
     Indication: GASTRIC POLYPS
     Route: 048
  9. CENTRUM SILVER [Concomitant]
     Route: 048
  10. DUONEB [Concomitant]
     Indication: CHRONIC OBSTRUCTIVE PULMONARY DISEASE
     Route: 055
  11. GUAIFENESIN [Concomitant]
     Indication: PULMONARY CONGESTION
     Route: 048

REACTIONS (11)
  - CONSTIPATION [None]
  - DACRYOSTENOSIS ACQUIRED [None]
  - DRY MOUTH [None]
  - EYE PAIN [None]
  - HEADACHE [None]
  - INTRAOCULAR PRESSURE INCREASED [None]
  - LUNG NEOPLASM [None]
  - NEOPLASM PROSTATE [None]
  - RENAL NEOPLASM [None]
  - URINARY INCONTINENCE [None]
  - URINE FLOW DECREASED [None]
